FAERS Safety Report 10633963 (Version 2)
Quarter: 2015Q2

REPORT INFORMATION
  Report Type: Spontaneous
  Country: US (occurrence: None)
  Receive Date: 20141203
  Receipt Date: 20150506
  Transmission Date: 20150821
  Serious: Yes (Other)
  Sender: FDA-Public Use
  Company Number: ADR-2014-02266

PATIENT
  Age: 72 Year
  Sex: Male

DRUGS (50)
  1. FLUVOXAMINE [Suspect]
     Active Substance: FLUVOXAMINE
  2. LIPITOR [Suspect]
     Active Substance: ATORVASTATIN CALCIUM
     Route: 048
  3. BUPIVACAINE [Suspect]
     Active Substance: BUPIVACAINE
  4. BACLOFEN. [Suspect]
     Active Substance: BACLOFEN
  5. ANDROGEL [Suspect]
     Active Substance: TESTOSTERONE
     Dosage: (20.25 MG/1.25 GRAM) GELPKT PLACE ONTO SKIN
     Route: 061
  6. BUPIVACAINE INTRATHECAL [Suspect]
     Active Substance: BUPIVACAINE
     Dosage: 3.668 MG/DAY  SEE B5
  7. DANTROLENE [Suspect]
     Active Substance: DANTROLENE
  8. ROBAXIN [Suspect]
     Active Substance: METHOCARBAMOL
  9. BUPIVACAINE [Suspect]
     Active Substance: BUPIVACAINE
  10. VITAMIN D [Suspect]
     Active Substance: CHOLECALCIFEROL
     Dosage: 50,000 UNIT ORAL ONCE EVERY OTHER WEEK
     Route: 048
  11. SKELAXIN [Suspect]
     Active Substance: METAXALONE
  12. BACLOFEN. [Suspect]
     Active Substance: BACLOFEN
  13. LIORESAL [Suspect]
     Active Substance: BACLOFEN
     Route: 048
  14. WELLBUTRIN [Suspect]
     Active Substance: BUPROPION HYDROCHLORIDE
     Route: 048
  15. CA CITRATE/MGOX/VITD3/B6/MIN (CALCIUM CITRATE +D WITH MAG ORAL) [Suspect]
     Active Substance: MINERALS\VITAMINS
  16. CALCIUM [Suspect]
     Active Substance: CALCIUM
     Route: 048
  17. SKELAXIN [Suspect]
     Active Substance: METAXALONE
     Route: 048
  18. DOLOPHINE [Suspect]
     Active Substance: METHADONE HYDROCHLORIDE
     Route: 048
  19. PROTONIX [Suspect]
     Active Substance: PANTOPRAZOLE SODIUM
     Route: 048
  20. WELLBUTRIN [Suspect]
     Active Substance: BUPROPION HYDROCHLORIDE
  21. MORPHINE [Suspect]
     Active Substance: MORPHINE
  22. DUONEB [Suspect]
     Active Substance: ALBUTEROL SULFATE\IPRATROPIUM BROMIDE
     Dosage: 0.5 MG-3MG (2.5 MG BASE) /3ML NEB INHALATION SOLUTION TAKE 3 ML BY NEBULIZATION TWICE DAILY
     Route: 055
  23. REMERON [Suspect]
     Active Substance: MIRTAZAPINE
     Route: 048
  24. BACLOFEN (BULK) 100 PERCENT PWD 75 MCG/ML [Suspect]
     Active Substance: BACLOFEN
  25. BUPIVACAINE [Suspect]
     Active Substance: BUPIVACAINE
  26. AVODART [Suspect]
     Active Substance: DUTASTERIDE
  27. LUVOX [Suspect]
     Active Substance: FLUVOXAMINE MALEATE
     Route: 048
  28. NASONEX [Suspect]
     Active Substance: MOMETASONE FUROATE
     Dosage: 1.62 PERCENT (20.25 MG/ 1.25 GRAM) GELPKT PLACE ONTO SKIN
     Route: 045
  29. ZITHROMAX [Suspect]
     Active Substance: AZITHROMYCIN DIHYDRATE
     Route: 048
  30. NEURONTIN [Suspect]
     Active Substance: GABAPENTIN
     Route: 048
  31. ZOFRAN [Suspect]
     Active Substance: ONDANSETRON HYDROCHLORIDE
     Route: 048
  32. CARAFATE [Suspect]
     Active Substance: SUCRALFATE
     Route: 048
  33. PARAFON FORTE [Suspect]
     Active Substance: CHLORZOXAZONE
     Route: 048
  34. BACLOFEN INTRATHECAL [Suspect]
     Active Substance: BACLOFEN
     Indication: PAIN
     Dosage: 22.928 MCG/DAY  SEE B5
  35. MIRTAZEPINE TEVA [Suspect]
     Active Substance: MIRTAZAPINE
  36. GABAPENTIN. [Suspect]
     Active Substance: GABAPENTIN
  37. CELEBREX [Suspect]
     Active Substance: CELECOXIB
  38. FOSAMAX [Suspect]
     Active Substance: ALENDRONATE SODIUM
     Route: 048
  39. ASPIRIN 81 MG EC [Suspect]
     Active Substance: ASPIRIN
     Route: 048
  40. SYMBICORT [Suspect]
     Active Substance: BUDESONIDE\FORMOTEROL FUMARATE DIHYDRATE
     Dosage: 160-4.5 MCG/ACTUATION INHALER INHALE TWO PUFFS INTO LUNGS TWO TIMES DAILY
     Route: 055
  41. FLOMAX [Suspect]
     Active Substance: TAMSULOSIN HYDROCHLORIDE
     Route: 048
  42. MORPHINE [Suspect]
     Active Substance: MORPHINE
  43. AUGMENTIN [Suspect]
     Active Substance: AMOXICILLIN\CLAVULANATE POTASSIUM
  44. CELEBREX [Suspect]
     Active Substance: CELECOXIB
     Route: 048
  45. GUAIFENESIN AC [Suspect]
     Active Substance: CODEINE PHOSPHATE\GUAIFENESIN
     Dosage: 5 ML TWO TIMES DAILY AS NEEDED FOR COUGH, ONE HALF TEASPOON
  46. LORATADINE. [Suspect]
     Active Substance: LORATADINE
     Route: 048
  47. SODIUM CHLORIDE. [Suspect]
     Active Substance: SODIUM CHLORIDE
     Dosage: INHALATION SOLUTION 4 ML NEBULIZATION DAILY INHALE 4 ML ONE TO TWO TIMES DAILY
     Route: 055
  48. STERILE WATER [Suspect]
     Active Substance: WATER
  49. MORPHINE 100 PERCENT PWD 2.2 MG/ML [Suspect]
     Active Substance: MORPHINE
  50. BASAL RATE MORPHINE [Suspect]
     Active Substance: MORPHINE

REACTIONS (10)
  - Muscle spasms [None]
  - Spinal compression fracture [None]
  - Incorrect route of drug administration [None]
  - Spinal column stenosis [None]
  - Kyphosis [None]
  - Rales [None]
  - Device dislocation [None]
  - Medication error [None]
  - Cough [None]
  - Lumbar spinal stenosis [None]
